FAERS Safety Report 6166675-4 (Version None)
Quarter: 2009Q2

REPORT INFORMATION
  Report Type: 
  Country: None (occurrence: None)
  Receive Date: 20090424
  Receipt Date: 20090422
  Transmission Date: 20091009
  Serious: Yes (Hospitalization)
  Sender: FDA-Public Use
  Company Number: DE-PURDUE-DEU_2009_0005197

PATIENT
  Age: 77 Year

DRUGS (6)
  1. MST 30 MG MUNDIPHARMA [Suspect]
     Indication: PAIN
     Dosage: 30 MG, BID
     Route: 048
     Dates: start: 20080715, end: 20080718
  2. ACETYLSALICYLIC ACID [Concomitant]
  3. ALLOPURINOL [Concomitant]
  4. AMLODIPINE [Concomitant]
  5. PANTOZOL                           /01263202/ [Concomitant]
  6. PREDNISOLON                        /00016201/ [Concomitant]

REACTIONS (1)
  - DISTURBANCE IN ATTENTION [None]
